FAERS Safety Report 8182133-X (Version None)
Quarter: 2012Q1

REPORT INFORMATION
  Report Type: 
  Country: None (occurrence: None)
  Receive Date: 20120302
  Receipt Date: 20120126
  Transmission Date: 20120608
  Serious: Yes (Other)
  Sender: FDA-Public Use
  Company Number: PHEH2012US003750

PATIENT
  Sex: Female
  Weight: 113 kg

DRUGS (16)
  1. SENOKOT [Concomitant]
  2. LEXAPRO [Concomitant]
     Dosage: 1 DF, QD
     Route: 048
  3. GILENYA [Suspect]
     Indication: MULTIPLE SCLEROSIS
     Dosage: 0.5 MG, QD
     Route: 048
     Dates: start: 20110401, end: 20110601
  4. LIPITOR [Concomitant]
     Dosage: 1 DF, QD
     Route: 048
  5. ADACEL [Concomitant]
  6. ALPRAZOLAM [Concomitant]
     Dosage: 1 DF, QD
     Route: 048
  7. VITAMIN D [Concomitant]
     Dosage: 1 DF, QD
     Route: 048
  8. DRAMAMINE [Concomitant]
     Indication: NAUSEA
  9. MORPHINE [Concomitant]
  10. TRAMADOL HCL [Concomitant]
  11. PROVIGIL [Concomitant]
     Dosage: 1 DF, QD
     Route: 048
  12. FROVA [Concomitant]
     Indication: MIGRAINE
     Dosage: 1 DF, PRN
  13. MAGNESIUM HYDROXIDE TAB [Concomitant]
  14. PROTONIX [Concomitant]
  15. ASPIRIN [Concomitant]
     Dosage: 1 DF, QD
     Route: 048
  16. ONDANSETRON [Concomitant]
     Indication: NAUSEA
     Dosage: 1 DF, TID

REACTIONS (24)
  - LUNG NEOPLASM [None]
  - HAEMORRHAGIC ANAEMIA [None]
  - DISCOMFORT [None]
  - TACHYCARDIA [None]
  - CRYING [None]
  - MOUTH ULCERATION [None]
  - ANXIETY [None]
  - NECROSIS [None]
  - MELAENA [None]
  - WEIGHT INCREASED [None]
  - MOOD SWINGS [None]
  - SUICIDAL IDEATION [None]
  - LUNG ADENOCARCINOMA STAGE IV [None]
  - PLEURAL FIBROSIS [None]
  - RASH MACULO-PAPULAR [None]
  - HORDEOLUM [None]
  - URINARY HESITATION [None]
  - MALIGNANT PLEURAL EFFUSION [None]
  - BLOOD PRESSURE INCREASED [None]
  - METASTATIC NEOPLASM [None]
  - CHEST PAIN [None]
  - CONJUNCTIVITIS [None]
  - FATIGUE [None]
  - ERYTHEMA OF EYELID [None]
